FAERS Safety Report 9971117 (Version 1)
Quarter: 2014Q1

REPORT INFORMATION
  Report Type: Spontaneous
  Country: US (occurrence: US)
  Receive Date: 20140306
  Receipt Date: 20140306
  Transmission Date: 20141002
  Serious: No
  Sender: FDA-Public Use
  Company Number: US-ABBVIE-13P-163-1149347-00

PATIENT
  Age: 18 Year
  Sex: Female
  Weight: 56.75 kg

DRUGS (2)
  1. HUMIRA [Suspect]
     Indication: PSORIASIS
     Route: 058
     Dates: start: 20130624, end: 20130917
  2. CORTISONE [Concomitant]
     Indication: PSORIASIS

REACTIONS (2)
  - Depression [Not Recovered/Not Resolved]
  - Mood swings [Not Recovered/Not Resolved]
